FAERS Safety Report 8048072-X (Version None)
Quarter: 2012Q1

REPORT INFORMATION
  Report Type: 
  Country: None (occurrence: None)
  Receive Date: 20120117
  Receipt Date: 20120112
  Transmission Date: 20120608
  Serious: No
  Sender: FDA-Public Use
  Company Number: US-BIOGENIDEC-2012BI001564

PATIENT
  Sex: Female

DRUGS (2)
  1. AVONEX [Suspect]
     Route: 030
     Dates: start: 20071211
  2. AVONEX [Suspect]
     Indication: MULTIPLE SCLEROSIS
     Route: 030
     Dates: start: 20040407, end: 20070205

REACTIONS (3)
  - BLINDNESS [None]
  - INFLUENZA LIKE ILLNESS [None]
  - MUSCULAR WEAKNESS [None]
